FAERS Safety Report 7187168-1 (Version None)
Quarter: 2010Q4

REPORT INFORMATION
  Report Type: 
  Country: None (occurrence: None)
  Receive Date: 20101222
  Receipt Date: 20101220
  Transmission Date: 20110411
  Serious: Yes (Hospitalization)
  Sender: FDA-Public Use
  Company Number: US-PFIZER INC-2010175994

PATIENT
  Sex: Male
  Weight: 86.168 kg

DRUGS (1)
  1. NARDIL [Suspect]
     Dosage: UNK
     Dates: start: 19840101, end: 20101107

REACTIONS (1)
  - PNEUMONIA [None]
